FAERS Safety Report 10706408 (Version 1)
Quarter: 2015Q1

REPORT INFORMATION
  Report Type: Spontaneous
  Country: US (occurrence: US)
  Receive Date: 20150113
  Receipt Date: 20150113
  Transmission Date: 20150721
  Serious: No
  Sender: FDA-Public Use
  Company Number: US-009507513-1501USA001310

PATIENT
  Age: 30 Year
  Sex: Female

DRUGS (1)
  1. METHYLPREDNISOLONE SODIUM SUCCINATE. [Suspect]
     Active Substance: METHYLPREDNISOLONE SODIUM SUCCINATE
     Indication: PITUITARY ENLARGEMENT
     Dosage: 1000 MG FOR 3 DAYS
     Dates: start: 200109, end: 200203

REACTIONS (4)
  - Cushingoid [Unknown]
  - Weight increased [Unknown]
  - Hyperglycaemia [Unknown]
  - Drug ineffective [Unknown]
